FAERS Safety Report 6835174-6 (Version None)
Quarter: 2010Q3

REPORT INFORMATION
  Report Type: 
  Country: None (occurrence: None)
  Receive Date: 20100713
  Receipt Date: 20100602
  Transmission Date: 20110219
  Serious: No
  Sender: FDA-Public Use
  Company Number: 2009BI012012

PATIENT
  Sex: Female

DRUGS (1)
  1. TYSABRI [Suspect]
     Indication: MULTIPLE SCLEROSIS
     Route: 042
     Dates: start: 20061025

REACTIONS (6)
  - BALANCE DISORDER [None]
  - EXCORIATION [None]
  - FALL [None]
  - FATIGUE [None]
  - INJURY [None]
  - VERTIGO [None]
